FAERS Safety Report 13492571 (Version 1)
Quarter: 2017Q2

REPORT INFORMATION
  Report Type: Spontaneous
  Country: US (occurrence: US)
  Receive Date: 20170427
  Receipt Date: 20170427
  Transmission Date: 20170830
  Serious: No
  Sender: FDA-Public Use
  Company Number: US-PFIZER INC-2017181694

PATIENT
  Sex: Female

DRUGS (1)
  1. XELJANZ XR [Suspect]
     Active Substance: TOFACITINIB CITRATE
     Dosage: 11 MG, DAILY

REACTIONS (21)
  - Pain [Unknown]
  - Bursitis [Unknown]
  - Hypoaesthesia [Unknown]
  - Myalgia [Unknown]
  - Depression [Unknown]
  - Bone disorder [Unknown]
  - Acne [Unknown]
  - Pain in extremity [Unknown]
  - Pyrexia [Unknown]
  - Chills [Unknown]
  - Vision blurred [Unknown]
  - Initial insomnia [Unknown]
  - Arthralgia [Not Recovered/Not Resolved]
  - Sleep disorder [Unknown]
  - Poor quality sleep [Unknown]
  - Headache [Unknown]
  - Musculoskeletal stiffness [Unknown]
  - Joint swelling [Unknown]
  - Dry eye [Unknown]
  - Muscular weakness [Unknown]
  - Middle insomnia [Unknown]

NARRATIVE: CASE EVENT DATE: 2010
